FAERS Safety Report 11679676 (Version 2)
Quarter: 2015Q4

REPORT INFORMATION
  Report Type: Spontaneous
  Country: US (occurrence: US)
  Receive Date: 20151027
  Receipt Date: 20151104
  Transmission Date: 20160304
  Serious: No
  Sender: FDA-Public Use
  Company Number: US-ELI_LILLY_AND_COMPANY-US201011001955

PATIENT
  Age: 73 Year
  Sex: Female
  Weight: 50.34 kg

DRUGS (5)
  1. FORTEO [Suspect]
     Active Substance: TERIPARATIDE
     Dosage: UNK UNK
     Route: 065
  2. XANOR [Concomitant]
     Active Substance: ALPRAZOLAM
  3. L THYROXINE [Concomitant]
     Active Substance: LEVOTHYROXINE SODIUM
  4. CALCIUM [Concomitant]
     Active Substance: CALCIUM
  5. FORTEO [Suspect]
     Active Substance: TERIPARATIDE
     Dosage: UNK UNK
     Route: 065
     Dates: start: 2003

REACTIONS (14)
  - Chest discomfort [Unknown]
  - Nasal congestion [Unknown]
  - Dyspnoea [Unknown]
  - Muscle disorder [Unknown]
  - Spinal pain [Unknown]
  - Injection site erythema [Unknown]
  - Injection site bruising [Unknown]
  - Muscle spasms [Recovered/Resolved]
  - Chest pain [Recovered/Resolved]
  - Malaise [Unknown]
  - Influenza [Unknown]
  - Oropharyngeal pain [Unknown]
  - Pneumonia [Unknown]
  - Injection site pain [Unknown]

NARRATIVE: CASE EVENT DATE: 2003
